FAERS Safety Report 6145250-1 (Version None)
Quarter: 2009Q2

REPORT INFORMATION
  Report Type: 
  Country: None (occurrence: None)
  Receive Date: 20090406
  Receipt Date: 20090401
  Transmission Date: 20091009
  Serious: Yes (Other)
  Sender: FDA-Public Use
  Company Number: FR-AVENTIS-200814563FR

PATIENT
  Age: 36 Year
  Sex: Female
  Weight: 150 kg

DRUGS (1)
  1. TAXOTERE [Suspect]
     Indication: BREAST CANCER FEMALE
     Route: 042
     Dates: start: 20080101, end: 20080101

REACTIONS (1)
  - BLINDNESS [None]
